FAERS Safety Report 8238865-8 (Version None)
Quarter: 2012Q1

REPORT INFORMATION
  Report Type: 
  Country: None (occurrence: None)
  Receive Date: 20120327
  Receipt Date: 20120314
  Transmission Date: 20120608
  Serious: Yes (Hospitalization)
  Sender: FDA-Public Use
  Company Number: JP-SANOFI-AVENTIS-2012SA013804

PATIENT
  Age: 49 Year
  Sex: Female
  Weight: 70 kg

DRUGS (9)
  1. METFORMIN HCL [Suspect]
     Indication: DIABETES MELLITUS
     Route: 048
     Dates: start: 20120220
  2. OMEPRAZOLE [Concomitant]
     Route: 048
  3. AMLODIPINE BESYLATE [Concomitant]
     Indication: HYPERTENSION
     Route: 048
     Dates: start: 20120220
  4. ZOLPIDEM [Suspect]
     Indication: INSOMNIA
     Route: 048
  5. AMARYL [Suspect]
     Indication: DIABETES MELLITUS
     Route: 048
     Dates: start: 20120220
  6. ALL OTHER THERAPEUTIC PRODUCTS [Suspect]
     Indication: DIABETES MELLITUS
     Route: 048
     Dates: start: 20120220
  7. DEPAKENE [Suspect]
     Indication: EPILEPSY
     Route: 048
     Dates: start: 20120220
  8. DIOVAN [Concomitant]
     Indication: HYPERTENSION
     Dates: start: 20120220
  9. MUCOSTA [Concomitant]

REACTIONS (2)
  - DEPRESSED LEVEL OF CONSCIOUSNESS [None]
  - OVERDOSE [None]
